FAERS Safety Report 10202184 (Version 3)
Quarter: 2014Q3

REPORT INFORMATION
  Report Type: Spontaneous
  Country: CN (occurrence: CN)
  Receive Date: 20140528
  Receipt Date: 20140707
  Transmission Date: 20150326
  Serious: Yes (Hospitalization)
  Sender: FDA-Public Use
  Company Number: CN-GLAXOSMITHKLINE-B0996583A

PATIENT
  Age: 79 Year
  Sex: Male
  Weight: 55 kg

DRUGS (1)
  1. SERETIDE [Suspect]
     Active Substance: FLUTICASONE FUROATE\SALMETEROL XINAFOATE
     Indication: CHRONIC OBSTRUCTIVE PULMONARY DISEASE
     Dosage: 1PUFF TWICE PER DAY
     Route: 055
     Dates: start: 201310

REACTIONS (2)
  - Cardiac disorder [Recovered/Resolved]
  - Prostatic disorder [Recovered/Resolved]

NARRATIVE: CASE EVENT DATE: 201310
